FAERS Safety Report 25110621 (Version 1)
Quarter: 2025Q1

REPORT INFORMATION
  Report Type: Spontaneous
  Country: US (occurrence: US)
  Receive Date: 20250324
  Receipt Date: 20250324
  Transmission Date: 20250408
  Serious: No
  Sender: KYOWA
  Company Number: US-KYOWAKIRIN-2025KK005301

PATIENT

DRUGS (2)
  1. CRYSVITA [Suspect]
     Active Substance: BUROSUMAB-TWZA
     Indication: Hereditary hypophosphataemic rickets
     Dosage: INJECT 10 MG UNDER THE SKIN EVERY 4 WEEKS ALONG WITH TWO (30 MG) VIALS FOR A TOTAL DOSE OF 70 MG EVE
     Route: 058
     Dates: start: 202405
  2. CRYSVITA [Suspect]
     Active Substance: BUROSUMAB-TWZA
     Indication: Hereditary hypophosphataemic rickets
     Dosage: INJECT 10 MG UNDER THE SKIN EVERY 4 WEEKS ALONG WITH TWO (30 MG) VIALS FOR A TOTAL DOSE OF 70 MG EVE
     Route: 058
     Dates: start: 202405

REACTIONS (2)
  - Gait disturbance [Unknown]
  - Therapeutic response shortened [Unknown]
